FAERS Safety Report 10687861 (Version 1)
Quarter: 2015Q1

REPORT INFORMATION
  Report Type: Spontaneous
  Country: US (occurrence: US)
  Receive Date: 20150102
  Receipt Date: 20150102
  Transmission Date: 20150720
  Serious: No
  Sender: FDA-Public Use
  Company Number: US-MALLINCKRODT-T201403629

PATIENT
  Sex: Male

DRUGS (2)
  1. THIORIDAZINE [Suspect]
     Active Substance: THIORIDAZINE
     Indication: OBSESSIVE-COMPULSIVE DISORDER
     Route: 065
  2. ANAFRANIL [Suspect]
     Active Substance: CLOMIPRAMINE HYDROCHLORIDE
     Indication: OBSESSIVE-COMPULSIVE DISORDER
     Dosage: UNK
     Route: 065

REACTIONS (4)
  - Abnormal behaviour [Unknown]
  - Unevaluable event [Unknown]
  - Insomnia [Unknown]
  - Feeling abnormal [Unknown]
